FAERS Safety Report 11531032 (Version 1)
Quarter: 2015Q3

REPORT INFORMATION
  Report Type: Spontaneous
  Country: US (occurrence: US)
  Receive Date: 20150903
  Receipt Date: 20150903
  Transmission Date: 20151125
  Serious: No
  Sender: FDA-Public Use
  Company Number: US-ELI_LILLY_AND_COMPANY-US201308000111

PATIENT
  Sex: Female
  Weight: 60.77 kg

DRUGS (1)
  1. CYMBALTA [Suspect]
     Active Substance: DULOXETINE HYDROCHLORIDE
     Indication: DEPRESSION
     Dosage: 30 MG, QD
     Route: 048
     Dates: start: 20120602, end: 201307

REACTIONS (12)
  - Night sweats [Unknown]
  - Nausea [Unknown]
  - Balance disorder [Unknown]
  - Confusional state [Unknown]
  - Crying [Unknown]
  - Nightmare [Unknown]
  - Pruritus generalised [Unknown]
  - Headache [Unknown]
  - Dizziness [Unknown]
  - Sleep disorder [Unknown]
  - Paraesthesia [Unknown]
  - Intentional product misuse [Unknown]
